FAERS Safety Report 21559309 (Version 1)
Quarter: 2022Q4

REPORT INFORMATION
  Report Type: Spontaneous
  Country: US (occurrence: None)
  Receive Date: 20221103
  Receipt Date: 20221103
  Transmission Date: 20230112
  Serious: Yes (Hospitalization)
  Sender: FDA-Public Use
  Company Number: None

PATIENT

DRUGS (2)
  1. INDIGO CARMINE [Suspect]
     Active Substance: INDIGOTINDISULFONATE SODIUM
  2. BRILLIANT GREEN [Suspect]
     Active Substance: BRILLIANT GREEN

REACTIONS (5)
  - Product selection error [None]
  - Wrong product administered [None]
  - Hypotension [None]
  - Electrocardiogram ST segment abnormal [None]
  - Product preparation error [None]
